FAERS Safety Report 10730986 (Version 1)
Quarter: 2015Q1

REPORT INFORMATION
  Report Type: Spontaneous
  Country: IT (occurrence: IT)
  Receive Date: 20150122
  Receipt Date: 20150122
  Transmission Date: 20150721
  Serious: Yes (Other)
  Sender: FDA-Public Use
  Company Number: IT-ABBVIE-15P-083-1334376-00

PATIENT
  Age: 45 Year
  Sex: Male

DRUGS (9)
  1. DEPAKENE [Suspect]
     Active Substance: VALPROIC ACID
     Dosage: EXTENDED RELEASE
     Route: 048
  2. DEPAKENE [Suspect]
     Active Substance: VALPROIC ACID
     Dosage: EXTENDED RELEASE
     Route: 048
  3. DEPAKENE [Suspect]
     Active Substance: VALPROIC ACID
     Indication: EPILEPSY
     Dosage: EXTENDED RELEASE
     Route: 048
     Dates: start: 20140101, end: 20141213
  4. GARDENALE (PHENOBARBITAL) [Suspect]
     Active Substance: PHENOBARBITAL
     Indication: EPILEPSY
     Route: 048
     Dates: start: 20140101, end: 20141213
  5. GARDENALE (PHENOBARBITAL) [Suspect]
     Active Substance: PHENOBARBITAL
     Route: 048
  6. DEPAKIN [Suspect]
     Active Substance: VALPROATE SODIUM
     Indication: EPILEPSY
     Route: 048
     Dates: start: 20140101, end: 20141213
  7. DEPAKIN [Suspect]
     Active Substance: VALPROATE SODIUM
     Route: 048
  8. GARDENALE (PHENOBARBITAL) [Suspect]
     Active Substance: PHENOBARBITAL
     Route: 048
  9. DEPAKIN [Suspect]
     Active Substance: VALPROATE SODIUM
     Route: 048

REACTIONS (2)
  - Medication error [Recovering/Resolving]
  - Epilepsy [Recovering/Resolving]

NARRATIVE: CASE EVENT DATE: 20141213
